FAERS Safety Report 18917855 (Version 1)
Quarter: 2021Q1

REPORT INFORMATION
  Report Type: Report from Study
  Country: US (occurrence: US)
  Receive Date: 20210219
  Receipt Date: 20210219
  Transmission Date: 20210420
  Serious: Yes (Hospitalization, Other)
  Sender: FDA-Public Use
  Company Number: US-BAUSCH-BL-2021-005819

PATIENT
  Age: 62 Year
  Sex: Male

DRUGS (2)
  1. XIFAXAN [Suspect]
     Active Substance: RIFAXIMIN
     Indication: HEPATIC CIRRHOSIS
  2. XIFAXAN [Suspect]
     Active Substance: RIFAXIMIN
     Indication: LIVER DISORDER
     Dosage: APPROX. THREE AND HALF YEARS AGO SEPTEMBER 2018
     Route: 048
     Dates: start: 201809

REACTIONS (7)
  - Platelet count decreased [Not Recovered/Not Resolved]
  - Intra-abdominal fluid collection [Not Recovered/Not Resolved]
  - Peripheral swelling [Not Recovered/Not Resolved]
  - Hepatic failure [Not Recovered/Not Resolved]
  - Infection [Not Recovered/Not Resolved]
  - Hepatic cirrhosis [Not Recovered/Not Resolved]
  - Seizure [Not Recovered/Not Resolved]

NARRATIVE: CASE EVENT DATE: 2020
